FAERS Safety Report 10080771 (Version 1)
Quarter: 2014Q2

REPORT INFORMATION
  Report Type: Spontaneous
  Country: US (occurrence: US)
  Receive Date: 20140416
  Receipt Date: 20140416
  Transmission Date: 20141212
  Serious: Yes (Other)
  Sender: FDA-Public Use
  Company Number: US-JNJFOC-20140406419

PATIENT
  Age: 86 Year
  Sex: Female

DRUGS (9)
  1. XARELTO [Suspect]
     Indication: CEREBROVASCULAR ACCIDENT PROPHYLAXIS
     Route: 048
     Dates: start: 20130711, end: 20130713
  2. XARELTO [Suspect]
     Indication: ATRIAL FIBRILLATION
     Route: 048
     Dates: start: 20130711, end: 20130713
  3. OMEPRAZOLE [Concomitant]
     Route: 065
  4. TRAZODONE [Concomitant]
     Route: 065
  5. METOPROLOL [Concomitant]
     Route: 065
  6. ESCITALOPRAM [Concomitant]
     Route: 065
  7. VESICARE [Concomitant]
     Route: 065
  8. DIGOXIN [Concomitant]
     Dosage: EVERY MORNING
     Route: 065
  9. FUROSEMIDE [Concomitant]
     Route: 065

REACTIONS (2)
  - Haematuria [Recovered/Resolved]
  - Urinary retention [Recovered/Resolved]
